FAERS Safety Report 5177461-6 (Version None)
Quarter: 2006Q4

REPORT INFORMATION
  Report Type: 
  Country: None (occurrence: None)
  Receive Date: 20061218
  Receipt Date: 20060721
  Transmission Date: 20070319
  Serious: No
  Sender: FDA-Public Use
  Company Number: US-AMGEN-KDL187416

PATIENT
  Sex: Female

DRUGS (2)
  1. ENBREL [Suspect]
     Indication: RHEUMATOID ARTHRITIS
     Route: 058
     Dates: start: 20040915
  2. ENBREL [Suspect]
     Indication: PSORIASIS

REACTIONS (3)
  - EAR INFECTION [None]
  - RHINORRHOEA [None]
  - SINUSITIS [None]
